FAERS Safety Report 11306601 (Version 2)
Quarter: 2015Q3

REPORT INFORMATION
  Report Type: Report from Study
  Country: CA (occurrence: CA)
  Receive Date: 20150723
  Receipt Date: 20150825
  Transmission Date: 20151125
  Serious: Yes (Death, Hospitalization)
  Sender: FDA-Public Use
  Company Number: PHHY2015CA021701

PATIENT
  Age: 75 Year
  Sex: Male

DRUGS (3)
  1. EXJADE [Suspect]
     Active Substance: DEFERASIROX
     Indication: MYELODYSPLASTIC SYNDROME
     Dosage: 250 MG, QD
     Route: 048
     Dates: start: 20150214
  2. EXJADE [Suspect]
     Active Substance: DEFERASIROX
     Dosage: 750 MG, QD
     Route: 048
     Dates: start: 20150615, end: 20150706
  3. EXJADE [Suspect]
     Active Substance: DEFERASIROX
     Dosage: 500 MG, QD
     Route: 048
     Dates: start: 20150316

REACTIONS (18)
  - Arthralgia [Unknown]
  - Decreased appetite [Unknown]
  - Insomnia [Unknown]
  - Asthenia [Unknown]
  - Fluid retention [Unknown]
  - Arthritis [Unknown]
  - Wrong technique in product usage process [Unknown]
  - Peripheral swelling [Recovered/Resolved]
  - Death [Fatal]
  - Intestinal perforation [Unknown]
  - Somnolence [Unknown]
  - Swelling [Unknown]
  - Gait disturbance [Unknown]
  - Pain in extremity [Unknown]
  - Swelling face [Recovered/Resolved]
  - Pyrexia [Unknown]
  - Fatigue [Unknown]
  - Diarrhoea [Recovered/Resolved]

NARRATIVE: CASE EVENT DATE: 20150318
